FAERS Safety Report 7611610-2 (Version None)
Quarter: 2011Q3

REPORT INFORMATION
  Report Type: 
  Country: None (occurrence: None)
  Receive Date: 20110715
  Receipt Date: 20110708
  Transmission Date: 20111222
  Serious: Yes (Hospitalization)
  Sender: FDA-Public Use
  Company Number: IT-GLAXOSMITHKLINE-B0733100A

PATIENT
  Sex: Female

DRUGS (9)
  1. LANOXIN [Suspect]
     Indication: PRODUCT USED FOR UNKNOWN INDICATION
     Dosage: .25MG PER DAY
     Dates: start: 20060701, end: 20110701
  2. MESTINON [Concomitant]
     Route: 048
  3. TICLID [Concomitant]
     Dosage: 250MG PER DAY
     Route: 048
  4. CLONAZEPAM [Concomitant]
     Route: 048
  5. EUTIMIL [Concomitant]
     Dosage: 20MG PER DAY
     Route: 048
  6. MEMANTINE [Concomitant]
     Indication: DEMENTIA ALZHEIMER'S TYPE
     Dosage: 10MG PER DAY
     Route: 048
     Dates: start: 20110301
  7. BISOPROLOL FUMARATE [Concomitant]
     Dosage: 1.25MG PER DAY
     Route: 048
  8. UNKNOWN DRUG [Concomitant]
     Dosage: 10MG PER DAY
     Route: 048
  9. UNKNOWN DRUG [Concomitant]

REACTIONS (5)
  - JOINT INJURY [None]
  - VERTIGO [None]
  - OVERDOSE [None]
  - FALL [None]
  - BACK INJURY [None]
